FAERS Safety Report 10761303 (Version 2)
Quarter: 2015Q2

REPORT INFORMATION
  Report Type: Spontaneous
  Country: US (occurrence: US)
  Receive Date: 20150204
  Receipt Date: 20150511
  Transmission Date: 20150821
  Serious: Yes (Hospitalization, Other)
  Sender: FDA-Public Use
  Company Number: US-PFIZER INC-2015044953

PATIENT
  Age: 52 Year
  Sex: Male

DRUGS (12)
  1. DELATESTRYL [Suspect]
     Active Substance: TESTOSTERONE ENANTHATE
     Indication: HORMONE REPLACEMENT THERAPY
     Dosage: UNK
     Dates: start: 199611, end: 201406
  2. TESTOSTERONE ENANTHATE. [Suspect]
     Active Substance: TESTOSTERONE ENANTHATE
     Indication: SOCIAL PHOBIA
     Dosage: UNK, MONTHLY
     Dates: start: 19960904, end: 19980215
  3. ANDROGEL [Suspect]
     Active Substance: TESTOSTERONE
     Indication: HORMONE REPLACEMENT THERAPY
     Dosage: UNK
     Dates: start: 199611, end: 201406
  4. TESTOSTERONE ENANTHATE. [Suspect]
     Active Substance: TESTOSTERONE ENANTHATE
     Indication: HORMONE REPLACEMENT THERAPY
  5. TESTIM [Suspect]
     Active Substance: TESTOSTERONE
     Indication: HORMONE REPLACEMENT THERAPY
     Dosage: UNK
     Dates: start: 199611, end: 201406
  6. ANDROGEL [Suspect]
     Active Substance: TESTOSTERONE
     Indication: SOCIAL PHOBIA
     Dosage: UNK, DAILY
     Dates: start: 200310, end: 201204
  7. DEPO-TESTOSTERONE [Suspect]
     Active Substance: TESTOSTERONE CYPIONATE
     Indication: HORMONE REPLACEMENT THERAPY
     Dosage: UNK
     Dates: start: 199611, end: 201406
  8. TESTIM [Suspect]
     Active Substance: TESTOSTERONE
     Indication: SOCIAL PHOBIA
     Dosage: UNK, DAILY
     Dates: start: 201204, end: 201210
  9. ANDRODERM [Suspect]
     Active Substance: TESTOSTERONE
     Indication: HORMONE REPLACEMENT THERAPY
     Dosage: UNK
     Dates: start: 199611, end: 201406
  10. ANDRODERM [Suspect]
     Active Substance: TESTOSTERONE
     Indication: SOCIAL PHOBIA
     Dosage: UNK, DAILY
     Dates: start: 200310, end: 200812
  11. TESTOSTERONE CIPIONATE [Suspect]
     Active Substance: TESTOSTERONE
     Indication: SOCIAL PHOBIA
     Dosage: UNK, EVERY 2 WEEKS
     Dates: start: 200309, end: 201204
  12. TESTOSTERONE CIPIONATE [Suspect]
     Active Substance: TESTOSTERONE
     Indication: HORMONE REPLACEMENT THERAPY

REACTIONS (4)
  - Deep vein thrombosis [Unknown]
  - Pulmonary embolism [Unknown]
  - Erectile dysfunction [Not Recovered/Not Resolved]
  - Cardiovascular disorder [Unknown]

NARRATIVE: CASE EVENT DATE: 1997
